FAERS Safety Report 7177141-1 (Version None)
Quarter: 2010Q4

REPORT INFORMATION
  Report Type: 
  Country: None (occurrence: None)
  Receive Date: 20101220
  Receipt Date: 20101213
  Transmission Date: 20110411
  Serious: Yes (Hospitalization)
  Sender: FDA-Public Use
  Company Number: AU-PFIZER INC-2010170831

PATIENT
  Age: 68 Year
  Sex: Female
  Weight: 72 kg

DRUGS (17)
  1. CP-690,550 [Suspect]
     Indication: RHEUMATOID ARTHRITIS
     Dosage: 10 MG, 2X/DAY
     Route: 048
     Dates: start: 20101004
  2. METHOTREXATE SODIUM [Suspect]
     Indication: RHEUMATOID ARTHRITIS
     Dosage: 5 MG, WEEKLY
     Route: 048
     Dates: start: 20090301
  3. PREDNISOLONE [Suspect]
     Dosage: 10 MG, 1X/DAY
     Route: 048
     Dates: start: 20090601
  4. FOLIC ACID [Concomitant]
     Indication: RHEUMATOID ARTHRITIS
     Dosage: 5 MG, WEEKLY
     Route: 048
     Dates: start: 20090301
  5. DI-GESIC [Concomitant]
     Indication: RHEUMATOID ARTHRITIS
     Dosage: 2 TABLETS THREE TIMES DAILY
     Route: 048
     Dates: start: 20050101
  6. ACETYLSALICYLIC ACID [Concomitant]
     Indication: CARDIOVASCULAR EVENT PROPHYLAXIS
     Dosage: 100 MG, 1X/DAY
     Route: 048
     Dates: start: 20080101
  7. SLOW-K [Concomitant]
     Indication: VITAMIN SUPPLEMENTATION
     Dosage: 2 TABLETS DAILY
     Route: 048
     Dates: start: 20050101
  8. CALTRATE [Concomitant]
     Indication: PROPHYLAXIS
     Dosage: ONE TABLET DAILY
     Route: 048
     Dates: start: 20090101
  9. SOMAC [Concomitant]
     Indication: GASTROOESOPHAGEAL REFLUX DISEASE
     Dosage: 40 MG, 1X/DAY
     Route: 048
     Dates: start: 20040101
  10. ENDEP [Concomitant]
     Indication: FIBROMYALGIA
     Dosage: 100 MG, 1X/DAY
     Route: 048
     Dates: start: 20030601
  11. VAGIFEM [Concomitant]
     Indication: PROPHYLAXIS URINARY TRACT INFECTION
     Dosage: 1 SUPPOSITORY AS NEEDED
     Route: 067
     Dates: start: 20100519
  12. METOPROLOL [Concomitant]
     Indication: HYPERTENSION
     Dosage: 25 MG, 1X/DAY
     Route: 048
     Dates: start: 20100607
  13. KARVEZIDE [Concomitant]
     Indication: HYPERTENSION
     Dosage: 12.5/300MG DAILY
     Route: 048
     Dates: start: 20100607
  14. SALBUTAMOL [Concomitant]
     Indication: BRONCHIECTASIS
     Dosage: 100 UG, AS NEEDED
     Route: 055
     Dates: start: 20101015
  15. SERETIDE [Concomitant]
     Indication: BRONCHIECTASIS
     Dosage: ONE PUFF TWICE DAILY
     Route: 055
     Dates: start: 20101117
  16. CRESTOR [Concomitant]
     Indication: BLOOD CHOLESTEROL
     Dosage: 5 MG, 1X/DAY
     Route: 048
     Dates: start: 20101117
  17. AUGMENTIN '125' [Concomitant]
     Indication: BRONCHIECTASIS
     Dosage: ONE TABLET TWICE DAILY
     Route: 048
     Dates: start: 20101117

REACTIONS (2)
  - BRONCHIECTASIS [None]
  - DYSPNOEA [None]
